FAERS Safety Report 18915040 (Version 1)
Quarter: 2021Q1

REPORT INFORMATION
  Report Type: Other
  Country: FR (occurrence: FR)
  Receive Date: 20210219
  Receipt Date: 20210219
  Transmission Date: 20210420
  Serious: Yes (Other)
  Sender: FDA-Public Use
  Company Number: FR-ROCHE-2772253

PATIENT
  Age: 50 Year
  Sex: Female

DRUGS (10)
  1. ETANERCEPT [Concomitant]
     Active Substance: ETANERCEPT
  2. GOLIMUMAB [Concomitant]
     Active Substance: GOLIMUMAB
  3. ABATACEPT [Concomitant]
     Active Substance: ABATACEPT
  4. RITUXIMAB. [Concomitant]
     Active Substance: RITUXIMAB
     Route: 065
  5. CICLOSPORINE [Concomitant]
     Active Substance: CYCLOSPORINE
  6. TOCILIZUMAB. [Suspect]
     Active Substance: TOCILIZUMAB
     Indication: RHEUMATOID ARTHRITIS
     Route: 042
  7. METHOTREXATE. [Concomitant]
     Active Substance: METHOTREXATE
  8. LEFLUNOMIDE. [Concomitant]
     Active Substance: LEFLUNOMIDE
  9. ADALIMUMAB [Concomitant]
     Active Substance: ADALIMUMAB
  10. SALAZOPYRINE [Concomitant]
     Active Substance: SULFASALAZINE

REACTIONS (2)
  - Ulcerative keratitis [Unknown]
  - Corneal infiltrates [Unknown]
